FAERS Safety Report 9694536 (Version 1)
Quarter: 2013Q4

REPORT INFORMATION
  Report Type: Spontaneous
  Country: US (occurrence: US)
  Receive Date: 20131118
  Receipt Date: 20131118
  Transmission Date: 20140711
  Serious: Yes (Hospitalization)
  Sender: FDA-Public Use
  Company Number: US-SANOFI-AVENTIS-2013SA080879

PATIENT
  Age: 70 Year
  Sex: Male

DRUGS (12)
  1. ZALTRAP [Suspect]
     Route: 065
  2. ZALTRAP [Suspect]
     Route: 065
  3. ZALTRAP [Suspect]
     Route: 065
  4. 5-FU [Suspect]
     Route: 065
  5. 5-FU [Suspect]
     Route: 065
  6. 5-FU [Suspect]
     Route: 065
  7. IRINOTECAN HYDROCHLORIDE [Suspect]
     Route: 065
  8. IRINOTECAN HYDROCHLORIDE [Suspect]
     Route: 065
  9. IRINOTECAN HYDROCHLORIDE [Suspect]
     Route: 065
  10. FOLINIC ACID [Suspect]
     Route: 065
  11. FOLINIC ACID [Suspect]
     Route: 065
  12. FOLINIC ACID [Suspect]
     Route: 065

REACTIONS (1)
  - Intestinal perforation [Recovered/Resolved]
